FAERS Safety Report 14326772 (Version 1)
Quarter: 2017Q4

REPORT INFORMATION
  Report Type: Spontaneous
  Country: GB (occurrence: GB)
  Receive Date: 20171226
  Receipt Date: 20171226
  Transmission Date: 20180321
  Serious: Yes (Other)
  Sender: FDA-Public Use
  Company Number: None

PATIENT
  Age: 65 Year
  Sex: Female
  Weight: 87.75 kg

DRUGS (10)
  1. SINGULAIR [Concomitant]
     Active Substance: MONTELUKAST SODIUM
  2. VITAMIN D [Concomitant]
     Active Substance: CHOLECALCIFEROL
  3. GABAPENTIN. [Concomitant]
     Active Substance: GABAPENTIN
  4. SYMBICORT [Concomitant]
     Active Substance: BUDESONIDE\FORMOTEROL FUMARATE DIHYDRATE
  5. CVS GENTLE LAXATIVE [Suspect]
     Active Substance: BISACODYL
     Indication: CONSTIPATION
     Dosage: ?          OTHER STRENGTH:DOES NOT SAY;QUANTITY:25 TABLET(S);?
     Route: 048
     Dates: start: 20171225, end: 20171225
  6. MAGNESIUM [Concomitant]
     Active Substance: MAGNESIUM
  7. ETODOLAC. [Concomitant]
     Active Substance: ETODOLAC
  8. ZIPRAZADINE [Concomitant]
  9. VITAMIN C [Concomitant]
     Active Substance: ASCORBIC ACID
  10. PROBIOTIC [Concomitant]
     Active Substance: PROBIOTICS NOS

REACTIONS (4)
  - Product substitution issue [None]
  - Dehydration [None]
  - Diarrhoea [None]
  - Malaise [None]

NARRATIVE: CASE EVENT DATE: 20171225
